FAERS Safety Report 6022360-0 (Version None)
Quarter: 2008Q4

REPORT INFORMATION
  Report Type: 
  Country: None (occurrence: None)
  Receive Date: 20081230
  Receipt Date: 20080923
  Transmission Date: 20090506
  Serious: No
  Sender: FDA-Public Use
  Company Number: US-KINGPHARMUSA00001-K200801130

PATIENT
  Age: 57 Year
  Sex: Female

DRUGS (2)
  1. INTAL [Suspect]
     Indication: ASTHMA
     Dosage: UNK, QID
     Dates: start: 20080919
  2. ALBUTEROL [Concomitant]
     Indication: ASTHMA
     Dosage: UNK, PRN

REACTIONS (2)
  - COUGH [None]
  - DYSPHONIA [None]
